FAERS Safety Report 8287369-5 (Version None)
Quarter: 2012Q2

REPORT INFORMATION
  Report Type: 
  Country: None (occurrence: None)
  Receive Date: 20120416
  Receipt Date: 20120413
  Transmission Date: 20120825
  Serious: Yes (Hospitalization)
  Sender: FDA-Public Use
  Company Number: ES-PFIZER INC-2012092070

PATIENT
  Age: 46 Year
  Sex: Female

DRUGS (5)
  1. TRAMADOL HCL [Suspect]
     Indication: ANKYLOSING SPONDYLITIS
     Dosage: 50 MG, 3X/DAY
     Route: 048
     Dates: start: 20111226, end: 20120117
  2. DIAZEPAM [Suspect]
     Indication: ANKYLOSING SPONDYLITIS
     Dosage: 5 MG, 1X/DAY
     Route: 048
     Dates: start: 20111226, end: 20120109
  3. TEMAZEPAM [Suspect]
     Indication: ANKYLOSING SPONDYLITIS
     Dosage: 50 MG, 1X/DAY
     Route: 048
     Dates: start: 20111224, end: 20111224
  4. CELEBREX [Suspect]
     Indication: ANKYLOSING SPONDYLITIS
     Dosage: 100 MG, 3X/DAY
     Route: 048
     Dates: start: 20111226, end: 20120109
  5. ARCOXIA [Suspect]
     Indication: ANKYLOSING SPONDYLITIS
     Dosage: 90 MG, 1X/DAY
     Route: 048
     Dates: start: 20111226, end: 20120109

REACTIONS (2)
  - HALLUCINATION, VISUAL [None]
  - ANXIETY [None]
